FAERS Safety Report 9928049 (Version 2)
Quarter: 2014Q1

REPORT INFORMATION
  Report Type: Spontaneous
  Country: US (occurrence: US)
  Receive Date: 20140227
  Receipt Date: 20140227
  Transmission Date: 20141002
  Serious: No
  Sender: FDA-Public Use
  Company Number: US-DRREDDYS-USA/USA/13/0035509

PATIENT
  Sex: Female

DRUGS (11)
  1. MONTELUKAST TABLETS 10 MG [Suspect]
     Indication: SEASONAL ALLERGY
     Route: 048
     Dates: end: 20131108
  2. FLEXERIL [Concomitant]
     Indication: MYALGIA
     Route: 065
  3. FLOVENT [Concomitant]
     Indication: PRODUCT USED FOR UNKNOWN INDICATION
     Route: 065
  4. PULMICORT [Concomitant]
     Indication: PRODUCT USED FOR UNKNOWN INDICATION
     Route: 065
  5. SYMBICORT [Concomitant]
     Indication: PRODUCT USED FOR UNKNOWN INDICATION
     Route: 065
  6. ATROVENT [Concomitant]
     Indication: SEASONAL ALLERGY
     Route: 065
  7. NAPROXEN [Concomitant]
     Indication: MYALGIA
     Route: 065
  8. NEXIUM [Concomitant]
     Indication: GASTROOESOPHAGEAL REFLUX DISEASE
     Route: 065
  9. RANITIDINE [Concomitant]
     Indication: GASTROOESOPHAGEAL REFLUX DISEASE
     Route: 065
  10. LOMOTIL [Concomitant]
     Indication: DIARRHOEA
     Route: 065
  11. EPIPEN [Concomitant]
     Indication: PRODUCT USED FOR UNKNOWN INDICATION
     Route: 065

REACTIONS (1)
  - Rash [Unknown]
